FAERS Safety Report 6124031-9 (Version None)
Quarter: 2009Q1

REPORT INFORMATION
  Report Type: 
  Country: None (occurrence: None)
  Receive Date: 20090317
  Receipt Date: 20090309
  Transmission Date: 20090719
  Serious: Yes (Hospitalization)
  Sender: FDA-Public Use
  Company Number: 2009SP002435

PATIENT
  Age: 51 Year
  Sex: Male
  Weight: 75 kg

DRUGS (1)
  1. TEMODAL [Suspect]
     Indication: GLIOBLASTOMA
     Dosage: 160 MG; QD; PO
     Route: 048
     Dates: start: 20080819, end: 20080926

REACTIONS (6)
  - ATAXIA [None]
  - CHOLESTASIS [None]
  - HEPATOMEGALY [None]
  - JAUNDICE [None]
  - VERTIGO [None]
  - WEIGHT DECREASED [None]
